FAERS Safety Report 24382407 (Version 1)
Quarter: 2024Q4

REPORT INFORMATION
  Report Type: Spontaneous
  Country: BR (occurrence: BR)
  Receive Date: 20241001
  Receipt Date: 20241001
  Transmission Date: 20250115
  Serious: Yes (Other)
  Sender: NOVARTIS
  Company Number: BR-002147023-NVSC2024BR193725

PATIENT
  Sex: Female
  Weight: 60 kg

DRUGS (1)
  1. RYDAPT [Suspect]
     Active Substance: MIDOSTAURIN
     Indication: Acute myelomonocytic leukaemia
     Dosage: 2 DOSAGE FORM, BID (2 TABLETS) (FOR 12 MONTHS)
     Route: 065
     Dates: start: 2023

REACTIONS (1)
  - Graft versus host disease [Unknown]

NARRATIVE: CASE EVENT DATE: 20230101
